FAERS Safety Report 6061197-3 (Version None)
Quarter: 2009Q1

REPORT INFORMATION
  Report Type: 
  Country: None (occurrence: None)
  Receive Date: 20090202
  Receipt Date: 20090122
  Transmission Date: 20090719
  Serious: Yes (Other)
  Sender: FDA-Public Use
  Company Number: US-JNJFOC-20090105702

PATIENT
  Sex: Female

DRUGS (6)
  1. REMICADE [Suspect]
     Route: 042
  2. REMICADE [Suspect]
     Route: 042
  3. REMICADE [Suspect]
     Indication: RHEUMATOID ARTHRITIS
     Route: 042
  4. METHOTREXATE [Concomitant]
  5. PREDNISONE [Concomitant]
  6. COZAAR [Concomitant]

REACTIONS (5)
  - INFUSION RELATED REACTION [None]
  - THROAT TIGHTNESS [None]
  - TINNITUS [None]
  - URTICARIA [None]
  - VISION BLURRED [None]
